FAERS Safety Report 8879573 (Version 1)
Quarter: 2012Q4

REPORT INFORMATION
  Report Type: 
  Country: US (occurrence: US)
  Receive Date: 20121101
  Receipt Date: 20121101
  Transmission Date: 20130627
  Serious: Yes (Death)
  Sender: FDA-Public Use
  Company Number: US-ASTELLAS-2012US010605

PATIENT
  Age: 75 Year
  Sex: Male

DRUGS (1)
  1. VESICARE [Suspect]
     Indication: POLLAKIURIA
     Dosage: 5 mg, UID/QD
     Route: 048
     Dates: start: 20120717, end: 20120828

REACTIONS (1)
  - Death [Fatal]
